FAERS Safety Report 6331870-8 (Version None)
Quarter: 2009Q3

REPORT INFORMATION
  Report Type: 
  Country: None (occurrence: None)
  Receive Date: 20090826
  Receipt Date: 20090730
  Transmission Date: 20100115
  Serious: Yes (Hospitalization, Other)
  Sender: FDA-Public Use
  Company Number: 2008-177920-NL

PATIENT
  Age: 39 Year
  Sex: Female
  Weight: 45.4 kg

DRUGS (19)
  1. NUVARING [Suspect]
     Indication: OFF LABEL USE
     Dosage: 1 DF; VAG
     Route: 067
     Dates: start: 20030501, end: 20060728
  2. NUVARING [Suspect]
     Indication: PAIN
     Dosage: 1 DF; VAG
     Route: 067
     Dates: start: 20030501, end: 20060728
  3. EXCEDRIN [Concomitant]
  4. ZELNORM [Concomitant]
  5. CONCERTA [Concomitant]
  6. TESTOSTERONE [Concomitant]
  7. TOPAMAX [Concomitant]
  8. FIORICET [Concomitant]
  9. VERAPAMIL [Concomitant]
  10. SINGULAIR [Concomitant]
  11. NASONEX [Concomitant]
  12. ADVAIR HFA [Concomitant]
  13. CLARITIN [Concomitant]
  14. ZYRTEC [Concomitant]
  15. ALLEGRA [Concomitant]
  16. CLARINEX [Concomitant]
  17. LORATADTNE [Concomitant]
  18. ENTEX ER [Concomitant]
  19. MAXAIR [Concomitant]

REACTIONS (15)
  - ABDOMINAL PAIN [None]
  - ACUTE SINUSITIS [None]
  - ATELECTASIS [None]
  - CHRONIC OBSTRUCTIVE PULMONARY DISEASE [None]
  - CONSTIPATION [None]
  - DEEP VEIN THROMBOSIS [None]
  - DYSPNOEA EXERTIONAL [None]
  - HEADACHE [None]
  - HYPERCOAGULATION [None]
  - MIGRAINE [None]
  - OVARIAN CYST [None]
  - PULMONARY EMBOLISM [None]
  - SEASONAL ALLERGY [None]
  - SWELLING [None]
  - URINARY TRACT INFECTION [None]
